FAERS Safety Report 7341738-6 (Version None)
Quarter: 2011Q1

REPORT INFORMATION
  Report Type: 
  Country: None (occurrence: None)
  Receive Date: 20110309
  Receipt Date: 20110301
  Transmission Date: 20110831
  Serious: Yes (Other)
  Sender: FDA-Public Use
  Company Number: GB-PFIZER INC-2011037380

PATIENT
  Age: 67 Year
  Weight: 54 kg

DRUGS (1)
  1. CELECOXIB [Suspect]
     Indication: OSTEOARTHRITIS
     Dosage: 100 MG, EVERY 2 DAYS
     Route: 048
     Dates: start: 20110210, end: 20110215

REACTIONS (1)
  - TONGUE DRY [None]
